FAERS Safety Report 4628799-X (Version None)
Quarter: 2005Q2

REPORT INFORMATION
  Report Type: 
  Country: None (occurrence: None)
  Receive Date: 20050406
  Receipt Date: 20030411
  Transmission Date: 20051028
  Serious: Yes (Other)
  Sender: FDA-Public Use
  Company Number: 6069

PATIENT
  Age: 80 Year
  Sex: Male

DRUGS (1)
  1. AMIODARONE HCL [Suspect]
     Dosage: 200 MG DAILY PO
     Route: 048

REACTIONS (3)
  - DYSPNOEA EXERTIONAL [None]
  - LUNG INFILTRATION [None]
  - PNEUMONITIS [None]
